FAERS Safety Report 10224018 (Version 2)
Quarter: 2014Q4

REPORT INFORMATION
  Report Type: Spontaneous
  Country: CO (occurrence: None)
  Receive Date: 20140605
  Receipt Date: 20141105
  Transmission Date: 20150528
  Serious: Yes (Other)
  Sender: FDA-Public Use
  Company Number: 2014-19655

PATIENT
  Age: 89 Year
  Sex: Female

DRUGS (1)
  1. EYLEA [Suspect]
     Active Substance: AFLIBERCEPT
     Indication: PRODUCT USED FOR UNKNOWN INDICATION
     Dosage: Q 6 WEEKS

REACTIONS (4)
  - Cataract [None]
  - Ocular hyperaemia [None]
  - Eye pain [None]
  - Off label use [None]

NARRATIVE: CASE EVENT DATE: 20140505
